FAERS Safety Report 6156906-9 (Version None)
Quarter: 2009Q2

REPORT INFORMATION
  Report Type: 
  Country: None (occurrence: None)
  Receive Date: 20090416
  Receipt Date: 20090407
  Transmission Date: 20091009
  Serious: Yes (Hospitalization, Congenital Anomaly)
  Sender: FDA-Public Use
  Company Number: A0680319A

PATIENT
  Sex: Male

DRUGS (3)
  1. PAXIL CR [Suspect]
     Indication: ANXIETY
     Dosage: 25MG PER DAY
     Dates: start: 20020101, end: 20031101
  2. VITAMIN AND MINERAL PRENATAL SUPPLEMENT W/ FOLIC ACID CAP [Concomitant]
  3. LORAZEPAM [Concomitant]
     Dates: start: 20020101, end: 20030101

REACTIONS (5)
  - CONGENITAL ANOMALY [None]
  - DANDY-WALKER SYNDROME [None]
  - DRUG EXPOSURE DURING PREGNANCY [None]
  - NEONATAL RESPIRATORY DISTRESS SYNDROME [None]
  - RETINOPATHY CONGENITAL [None]
